FAERS Safety Report 18220120 (Version 1)
Quarter: 2020Q3

REPORT INFORMATION
  Report Type: Spontaneous
  Country: FR (occurrence: FR)
  Receive Date: 20200902
  Receipt Date: 20200902
  Transmission Date: 20201103
  Serious: Yes (Life-Threatening)
  Sender: FDA-Public Use
  Company Number: FR-CADILA HEALTHCARE LIMITED-FR-ZYDUS-024244

PATIENT

DRUGS (8)
  1. METFORMIN [Suspect]
     Active Substance: METFORMIN HYDROCHLORIDE
     Indication: DIABETES MELLITUS
     Dosage: 3 DOSAGE FORM,(INTERVAL :1 DAYS)
     Route: 048
     Dates: end: 20180420
  2. LEVOTHYROX [Concomitant]
     Active Substance: LEVOTHYROXINE
  3. AMLODIPINE BESILATE,PERINDOPRIL ARGININE [Suspect]
     Active Substance: AMLODIPINE BESYLATE\PERINDOPRIL ARGININE
     Indication: HYPERTENSION
     Dosage: 1 DOSAGE FORM,(INTERVAL :1 DAYS)
     Route: 048
     Dates: end: 20180420
  4. INSULINE DEGLUDEC,LIRAGLUTIDE [Suspect]
     Active Substance: INSULIN DEGLUDEC\LIRAGLUTIDE
     Indication: DIABETES MELLITUS
     Dosage: 26 INTERNATIONAL UNIT,(INTERVAL :1 DAYS)
     Route: 058
     Dates: end: 20180420
  5. PANTOPRAZOLE [Concomitant]
     Active Substance: PANTOPRAZOLE
  6. REPAGLINIDE. [Suspect]
     Active Substance: REPAGLINIDE
     Indication: DIABETES MELLITUS
     Dosage: 3 DOSAGE FORM,(INTERVAL :1 DAYS)
     Route: 048
     Dates: end: 20180420
  7. LIPTRUZET [Suspect]
     Active Substance: ATORVASTATIN CALCIUM\EZETIMIBE
     Indication: DYSLIPIDAEMIA
     Dosage: 1 DOSAGE FORM,(INTERVAL :1 DAYS)
     Route: 048
     Dates: end: 20180420
  8. CLOPIDOGREL [Concomitant]
     Active Substance: CLOPIDOGREL BISULFATE

REACTIONS (4)
  - Acute coronary syndrome [Recovering/Resolving]
  - Lactic acidosis [Recovering/Resolving]
  - Acute kidney injury [Not Recovered/Not Resolved]
  - Disturbance in attention [Not Recovered/Not Resolved]

NARRATIVE: CASE EVENT DATE: 20180420
